FAERS Safety Report 7141363-6 (Version None)
Quarter: 2010Q4

REPORT INFORMATION
  Report Type: 
  Country: None (occurrence: None)
  Receive Date: 20101202
  Receipt Date: 20101202
  Transmission Date: 20110411
  Serious: No
  Sender: FDA-Public Use
  Company Number: None

PATIENT

DRUGS (1)
  1. CENTRUM MULTIVITAMIN/MULTI  MINERAL SUPPLEMENT LIQUID [Suspect]

REACTIONS (1)
  - MALAISE [None]
